FAERS Safety Report 20215030 (Version 1)
Quarter: 2021Q4

REPORT INFORMATION
  Report Type: Spontaneous
  Country: US (occurrence: US)
  Receive Date: 20211222
  Receipt Date: 20211222
  Transmission Date: 20220303
  Serious: Yes (Other)
  Sender: FDA-Public Use
  Company Number: US-BIOCODEX2-2021001557

PATIENT

DRUGS (1)
  1. DIACOMIT [Suspect]
     Active Substance: STIRIPENTOL
     Indication: Epilepsy
     Dosage: 500 MG, 2 CAPSULES BY MOUTH THREE TIMES A DAY
     Route: 048
     Dates: start: 20210922

REACTIONS (4)
  - Seizure [Unknown]
  - Fall [Unknown]
  - Product dose omission issue [Unknown]
  - Product use in unapproved indication [Unknown]
